FAERS Safety Report 5940093-3 (Version None)
Quarter: 2008Q4

REPORT INFORMATION
  Report Type: 
  Country: None (occurrence: None)
  Receive Date: 20081104
  Receipt Date: 20081029
  Transmission Date: 20090506
  Serious: Yes (Life-Threatening, Hospitalization, Other)
  Sender: FDA-Public Use
  Company Number: PHHY2008JP01445

PATIENT
  Sex: Male
  Weight: 67 kg

DRUGS (9)
  1. ZOMETA [Suspect]
     Indication: METASTASES TO BONE
     Dosage: 4MG/ DAY
     Route: 042
     Dates: start: 20070615
  2. CASODEX [Suspect]
     Indication: PROSTATE CANCER
     Dosage: 80 MG/ DAY
     Route: 048
     Dates: start: 20070615
  3. AMLODIN [Concomitant]
     Indication: HYPERTENSION
     Dosage: 5 MG
     Route: 048
  4. LOXONIN [Concomitant]
     Indication: PAIN
     Dosage: 120 MG
     Route: 048
     Dates: start: 20070511, end: 20070613
  5. LANSOPRAZOLE [Concomitant]
     Indication: ABDOMINAL DISCOMFORT
     Dosage: 15 MG
     Route: 048
     Dates: start: 20070511
  6. MAGMITT [Concomitant]
     Indication: CONSTIPATION
     Dosage: 990 MG
     Route: 048
     Dates: start: 20070511
  7. ALOSENN [Concomitant]
     Indication: CONSTIPATION
     Dosage: 0.5 G
     Route: 048
     Dates: start: 20070511
  8. VOLTAREN [Concomitant]
     Indication: PAIN
     Dosage: 12.5 G
     Route: 054
     Dates: start: 20070511
  9. CODEINE PHOSPHATE [Concomitant]
     Indication: PAIN
     Dosage: 60 MG
     Route: 065
     Dates: start: 20070511, end: 20070613

REACTIONS (13)
  - ALTERED STATE OF CONSCIOUSNESS [None]
  - ASPARTATE AMINOTRANSFERASE INCREASED [None]
  - BLOOD ALKALINE PHOSPHATASE INCREASED [None]
  - BLOOD CREATININE INCREASED [None]
  - BLOOD LACTATE DEHYDROGENASE INCREASED [None]
  - BLOOD UREA INCREASED [None]
  - C-REACTIVE PROTEIN INCREASED [None]
  - DISSEMINATED INTRAVASCULAR COAGULATION [None]
  - GAMMA-GLUTAMYLTRANSFERASE INCREASED [None]
  - PLATELET COUNT DECREASED [None]
  - PYREXIA [None]
  - RENAL IMPAIRMENT [None]
  - TUMOUR LYSIS SYNDROME [None]
